FAERS Safety Report 25669884 (Version 1)
Quarter: 2025Q3

REPORT INFORMATION
  Report Type: Spontaneous
  Country: TR (occurrence: TR)
  Receive Date: 20250812
  Receipt Date: 20250812
  Transmission Date: 20251021
  Serious: Yes (Hospitalization)
  Sender: ACCORD
  Company Number: TR-MLMSERVICE-20250725-PI591638-00285-1

PATIENT
  Age: 73 Year
  Sex: Male

DRUGS (3)
  1. SERTRALINE [Interacting]
     Active Substance: SERTRALINE HYDROCHLORIDE
     Indication: Defiant behaviour
  2. RISPERIDONE [Interacting]
     Active Substance: RISPERIDONE
     Indication: Defiant behaviour
  3. ASPIRIN [Concomitant]
     Active Substance: ASPIRIN
     Indication: Cerebrovascular accident prophylaxis

REACTIONS (2)
  - Myoclonus [Recovered/Resolved]
  - Drug interaction [Unknown]
